FAERS Safety Report 5100663-1 (Version None)
Quarter: 2006Q3

REPORT INFORMATION
  Report Type: 
  Country: None (occurrence: None)
  Receive Date: 20060731
  Receipt Date: 20060521
  Transmission Date: 20061208
  Serious: No
  Sender: FDA-Public Use
  Company Number: 2006PV014172

PATIENT
  Age: 41 Year
  Sex: Female

DRUGS (1)
  1. BYETTA [Suspect]
     Indication: DIABETES MELLITUS
     Dosage: 5 MCG SC
     Route: 058

REACTIONS (3)
  - ASTHENIA [None]
  - DIZZINESS [None]
  - UNEVALUABLE EVENT [None]
